FAERS Safety Report 23437608 (Version 1)
Quarter: 2024Q1

REPORT INFORMATION
  Report Type: Spontaneous
  Country: US (occurrence: None)
  Receive Date: 20240123
  Receipt Date: 20240123
  Transmission Date: 20240409
  Serious: Yes (Life-Threatening, Hospitalization, Other)
  Sender: FDA-Public Use
  Company Number: None

PATIENT
  Age: 62 Year
  Sex: Female
  Weight: 59.4 kg

DRUGS (1)
  1. MOUNJARO [Suspect]
     Active Substance: TIRZEPATIDE
     Indication: Product used for unknown indication
     Dosage: OTHER FREQUENCY : ONCE EVERY WEEK;?
     Route: 058

REACTIONS (3)
  - Asthenia [None]
  - Confusional state [None]
  - Blood sodium abnormal [None]

NARRATIVE: CASE EVENT DATE: 20230830
